FAERS Safety Report 5254653-9 (Version None)
Quarter: 2007Q1

REPORT INFORMATION
  Report Type: 
  Country: None (occurrence: None)
  Receive Date: 20070302
  Receipt Date: 20070221
  Transmission Date: 20070707
  Serious: Yes (Other)
  Sender: FDA-Public Use
  Company Number: NO-PFIZER INC-2007015132

PATIENT
  Age: 41 Year
  Sex: Male

DRUGS (4)
  1. LIPITOR [Suspect]
     Route: 048
  2. LESCOL [Suspect]
  3. ZOCOR [Suspect]
  4. MEVACOR [Suspect]

REACTIONS (3)
  - HEADACHE [None]
  - MYALGIA [None]
  - NERVOUS SYSTEM DISORDER [None]
